FAERS Safety Report 5721281-8 (Version None)
Quarter: 2008Q2

REPORT INFORMATION
  Report Type: 
  Country: None (occurrence: None)
  Receive Date: 20080424
  Receipt Date: 20080409
  Transmission Date: 20081010
  Serious: Yes (Life-Threatening, Other)
  Sender: FDA-Public Use
  Company Number: DSA_30812_2007

PATIENT
  Sex: Male

DRUGS (2)
  1. HERBESSER (HERBESSER-DILTIAZEM HYDROCHLORIDE) 20 MG (NOT SPECIFIED) [Suspect]
     Indication: HYPERTENSION
     Dosage: 90 MG QD ORAL
     Route: 048
     Dates: end: 20021001
  2. INSULIN [Concomitant]

REACTIONS (5)
  - ANGINA PECTORIS [None]
  - ATRIOVENTRICULAR BLOCK COMPLETE [None]
  - MALAISE [None]
  - NECK PAIN [None]
  - SPINAL LIGAMENT OSSIFICATION [None]
